FAERS Safety Report 14490804 (Version 9)
Quarter: 2023Q4

REPORT INFORMATION
  Report Type: Report from Study
  Country: GB (occurrence: GB)
  Receive Date: 20180206
  Receipt Date: 20231020
  Transmission Date: 20240110
  Serious: Yes (Life-Threatening, Hospitalization, Disabling)
  Sender: FDA-Public Use
  Company Number: GB-ROCHE-2067417

PATIENT
  Age: 69 Year
  Sex: Male
  Weight: 120 kg

DRUGS (10)
  1. ALTEPLASE [Suspect]
     Active Substance: ALTEPLASE
     Indication: Ischaemic stroke
     Dosage: AT 15:34 HOUR 9 MG BOLUS AND INFUSION 81 MG AT 15:37 HOURS
     Route: 040
     Dates: start: 20180123
  2. ALTEPLASE [Suspect]
     Active Substance: ALTEPLASE
     Route: 042
     Dates: start: 20180123, end: 20180123
  3. ASPIRIN [Concomitant]
     Active Substance: ASPIRIN
     Dates: start: 20180124
  4. ATORVASTATIN [Concomitant]
     Active Substance: ATORVASTATIN
     Indication: Product used for unknown indication
     Dates: start: 20180123
  5. CHOLECALCIFEROL [Concomitant]
     Active Substance: CHOLECALCIFEROL
     Indication: Product used for unknown indication
     Route: 048
     Dates: start: 2018
  6. LANSOPRAZOLE [Concomitant]
     Active Substance: LANSOPRAZOLE
     Indication: Product used for unknown indication
     Route: 048
  7. BISOPROLOL [Concomitant]
     Active Substance: BISOPROLOL\BISOPROLOL FUMARATE
     Indication: Product used for unknown indication
     Route: 048
     Dates: start: 20180202
  8. DIGOXIN [Concomitant]
     Active Substance: DIGOXIN
     Indication: Product used for unknown indication
     Route: 048
     Dates: start: 20180131
  9. PHENYTOIN SODIUM [Concomitant]
     Active Substance: PHENYTOIN SODIUM
     Indication: Product used for unknown indication
     Dates: start: 20180126
  10. TINZAPARIN [Concomitant]
     Active Substance: TINZAPARIN
     Dosage: 4500 UNITS
     Route: 058
     Dates: start: 20180126

REACTIONS (3)
  - Pneumonia aspiration [Recovered/Resolved]
  - Hypotension [Recovered/Resolved]
  - Post stroke seizure [Recovered/Resolved]

NARRATIVE: CASE EVENT DATE: 20180123
